FAERS Safety Report 12376705 (Version 2)
Quarter: 2016Q2

REPORT INFORMATION
  Report Type: Report from Study
  Country: US (occurrence: US)
  Receive Date: 20160517
  Receipt Date: 20160517
  Transmission Date: 20160815
  Serious: No
  Sender: FDA-Public Use
  Company Number: US-MALLINCKRODT-T201503000

PATIENT
  Age: 70 Year
  Sex: Female

DRUGS (4)
  1. REPOSITORY CORTICOTROPIN INJECTION [Suspect]
     Active Substance: CORTICOTROPIN
     Indication: NEPHROTIC SYNDROME
     Dosage: 40 UNITS EVERY OTHER DAY (QOD)
     Route: 058
     Dates: end: 20150819
  2. TYLENOL SINUS MEDICATION [Suspect]
     Active Substance: ACETAMINOPHEN\PSEUDOEPHEDRINE HYDROCHLORIDE
     Indication: HEADACHE
  3. REPOSITORY CORTICOTROPIN INJECTION [Suspect]
     Active Substance: CORTICOTROPIN
     Indication: PROTEINURIA
  4. TYLENOL SINUS MEDICATION [Suspect]
     Active Substance: ACETAMINOPHEN\PSEUDOEPHEDRINE HYDROCHLORIDE
     Indication: SINUSITIS
     Route: 065

REACTIONS (15)
  - Mood altered [Unknown]
  - Peripheral swelling [Unknown]
  - Contusion [Unknown]
  - Blood glucose increased [Unknown]
  - Tremor [Unknown]
  - Pain in extremity [Unknown]
  - Decreased appetite [Unknown]
  - Abdominal pain [Recovered/Resolved]
  - Visual impairment [Unknown]
  - White blood cell count increased [Unknown]
  - Sinusitis [Unknown]
  - Drug ineffective [Unknown]
  - Stomatitis [Unknown]
  - Headache [Unknown]
  - Back pain [Recovered/Resolved]

NARRATIVE: CASE EVENT DATE: 20150828
